FAERS Safety Report 13096749 (Version 2)
Quarter: 2020Q3

REPORT INFORMATION
  Report Type: Report from Study
  Country: ES (occurrence: ES)
  Receive Date: 20170109
  Receipt Date: 20200827
  Transmission Date: 20201102
  Serious: Yes (Other)
  Sender: FDA-Public Use
  Company Number: ES-TEVA-726508ISR

PATIENT
  Age: 51 Year
  Sex: Female

DRUGS (3)
  1. CLONAZEPAM. [Concomitant]
     Active Substance: CLONAZEPAM
     Route: 048
     Dates: start: 20140821
  2. DULOXETINE. [Concomitant]
     Active Substance: DULOXETINE
     Route: 048
     Dates: start: 20161013
  3. COPAXONE [Suspect]
     Active Substance: GLATIRAMER ACETATE
     Indication: MULTIPLE SCLEROSIS
     Route: 058
     Dates: start: 20151014

REACTIONS (7)
  - Lipoatrophy [Not Recovered/Not Resolved]
  - Paraesthesia [Unknown]
  - Lipodystrophy acquired [Not Recovered/Not Resolved]
  - Arthralgia [Unknown]
  - Vision blurred [Unknown]
  - Tinnitus [Unknown]
  - Oropharyngeal swelling [Unknown]

NARRATIVE: CASE EVENT DATE: 20160627
